FAERS Safety Report 9352081 (Version 1)
Quarter: 2013Q2

REPORT INFORMATION
  Report Type: Spontaneous
  Country: US (occurrence: US)
  Receive Date: 20130617
  Receipt Date: 20130617
  Transmission Date: 20140414
  Serious: No
  Sender: FDA-Public Use
  Company Number: US-BAYER-2013-073440

PATIENT
  Sex: Female
  Weight: 52.61 kg

DRUGS (8)
  1. BETASERON [Suspect]
     Dosage: 0.25 MG, QOD
     Route: 058
  2. MOTRIN [Concomitant]
     Dosage: 600 MG, UNK
  3. TOPAMAX [Concomitant]
     Dosage: 100 MG, UNK
  4. RITALIN [Concomitant]
     Dosage: 20 MG, UNK
  5. TREXIMET [Concomitant]
     Dosage: 85 MG, UNK
  6. TREXIMET [Concomitant]
     Dosage: 500 MG, UNK
  7. AMPYRA [Concomitant]
     Dosage: 10 MG, UNK
  8. ARANESP [Concomitant]
     Dosage: 500 MG, UNK

REACTIONS (2)
  - Influenza like illness [Recovered/Resolved]
  - Injection site erythema [Unknown]
